FAERS Safety Report 25272425 (Version 3)
Quarter: 2025Q2

REPORT INFORMATION
  Report Type: Report from Study
  Country: RU (occurrence: RU)
  Receive Date: 20250506
  Receipt Date: 20250520
  Transmission Date: 20250716
  Serious: Yes (Hospitalization)
  Sender: ASCEND THERAPEUTICS US, LLC
  Company Number: RU-Ascend Therapeutics US, LLC-2176186

PATIENT

DRUGS (6)
  1. ESTROGEL [Suspect]
     Active Substance: ESTRADIOL
     Indication: Product used for unknown indication
     Dates: start: 20240711, end: 2024
  2. ESTRADIOL [Suspect]
     Active Substance: ESTRADIOL
     Dates: start: 20240711, end: 2024
  3. VICASOL [ASCORBIC ACID;ERGOCALCIFEROL;RETINOL] [Concomitant]
  4. ESTRADIOL [Suspect]
     Active Substance: ESTRADIOL
     Dates: start: 2024, end: 20250426
  5. ESTRADIOL [Suspect]
     Active Substance: ESTRADIOL
     Dates: start: 2024
  6. ESTRADIOL [Suspect]
     Active Substance: ESTRADIOL
     Dates: start: 2024, end: 2024

REACTIONS (2)
  - Hypoxic ischaemic encephalopathy neonatal [Recovered/Resolved]
  - Foetal exposure during pregnancy [Unknown]

NARRATIVE: CASE EVENT DATE: 20240101
